FAERS Safety Report 13613385 (Version 1)
Quarter: 2017Q2

REPORT INFORMATION
  Report Type: Spontaneous
  Country: US (occurrence: US)
  Receive Date: 20170605
  Receipt Date: 20170605
  Transmission Date: 20170830
  Serious: No
  Sender: FDA-Public Use
  Company Number: US-ACTELION-A-US2017-154682

PATIENT
  Age: 49 Year
  Sex: Female

DRUGS (2)
  1. OPSUMIT [Suspect]
     Active Substance: MACITENTAN
     Indication: PULMONARY ARTERIAL HYPERTENSION
     Dosage: 10 MG, QD
     Route: 048
     Dates: start: 20140109
  2. ADCIRCA [Concomitant]
     Active Substance: TADALAFIL

REACTIONS (1)
  - Condition aggravated [Unknown]

NARRATIVE: CASE EVENT DATE: 20170525
